FAERS Safety Report 16746635 (Version 1)
Quarter: 2019Q3

REPORT INFORMATION
  Report Type: Spontaneous
  Country: LI (occurrence: CH)
  Receive Date: 20190827
  Receipt Date: 20190827
  Transmission Date: 20191005
  Serious: Yes (Hospitalization, Other)
  Sender: FDA-Public Use
  Company Number: LI-MYLANLABS-2019M1079985

PATIENT
  Age: 41 Year
  Sex: Female

DRUGS (2)
  1. PROXEN                             /00256201/ [Suspect]
     Active Substance: NAPROXEN
     Indication: TOOTHACHE
     Dosage: 500 MILLIGRAM, PRN
     Route: 048
     Dates: start: 2014, end: 2014
  2. IBUPROFEN. [Suspect]
     Active Substance: IBUPROFEN
     Indication: HEADACHE
     Dosage: 500 MILLIGRAM, PRN
     Route: 048

REACTIONS (2)
  - Tachycardia [Recovered/Resolved]
  - Loss of consciousness [Recovered/Resolved]

NARRATIVE: CASE EVENT DATE: 2014
